FAERS Safety Report 23782764 (Version 1)
Quarter: 2024Q2

REPORT INFORMATION
  Report Type: Spontaneous
  Country: CA (occurrence: CA)
  Receive Date: 20240425
  Receipt Date: 20240425
  Transmission Date: 20240716
  Serious: Yes (Other)
  Sender: FDA-Public Use
  Company Number: CA-SANDOZ-SDZ2024CA042601

PATIENT
  Age: 10 Year
  Sex: Male

DRUGS (5)
  1. ARIPIPRAZOLE [Suspect]
     Active Substance: ARIPIPRAZOLE
     Indication: Autism spectrum disorder
     Dosage: UNK
     Route: 065
  2. METHYLPHENIDATE [Suspect]
     Active Substance: METHYLPHENIDATE
     Indication: Autism spectrum disorder
     Dosage: UNK
     Route: 065
  3. RISPERIDONE [Suspect]
     Active Substance: RISPERIDONE
     Indication: Autism spectrum disorder
     Dosage: UNK
     Route: 065
  4. ATOMOXETINE [Concomitant]
     Active Substance: ATOMOXETINE\ATOMOXETINE HYDROCHLORIDE
     Indication: Autism spectrum disorder
     Dosage: UNK
     Route: 065
  5. LISDEXAMFETAMINE DIMESYLATE [Concomitant]
     Active Substance: LISDEXAMFETAMINE DIMESYLATE
     Indication: Autism spectrum disorder
     Dosage: UNK
     Route: 065

REACTIONS (3)
  - Autism spectrum disorder [Unknown]
  - Condition aggravated [Unknown]
  - Weight increased [Unknown]
